FAERS Safety Report 7318911-6 (Version None)
Quarter: 2011Q1

REPORT INFORMATION
  Report Type: 
  Country: None (occurrence: None)
  Receive Date: 20110228
  Receipt Date: 20110223
  Transmission Date: 20110831
  Serious: Yes (Other)
  Sender: FDA-Public Use
  Company Number: GB-ELI_LILLY_AND_COMPANY-GB201102006374

PATIENT
  Age: 66 Year
  Sex: Female

DRUGS (3)
  1. VITAMIN B-12 [Concomitant]
  2. HUMULIN 70/30 [Suspect]
     Dosage: UNK, UNKNOWN
  3. MIXTARD HUMAN 70/30 [Concomitant]

REACTIONS (3)
  - NAUSEA [None]
  - VOMITING [None]
  - TREMOR [None]
